FAERS Safety Report 20094448 (Version 30)
Quarter: 2023Q4

REPORT INFORMATION
  Report Type: Spontaneous
  Country: CA (occurrence: CA)
  Receive Date: 20211122
  Receipt Date: 20231007
  Transmission Date: 20240109
  Serious: Yes (Hospitalization, Other)
  Sender: FDA-Public Use
  Company Number: CA-CELLTRION INC.-2021CA015740

PATIENT

DRUGS (27)
  1. INFLECTRA [Suspect]
     Active Substance: INFLIXIMAB-DYYB
     Indication: Crohn^s disease
     Dosage: 5 MG/KG ON WEEKS 0, 2 AND 6 AND THEN EVERY 8 WEEKS
     Route: 042
     Dates: start: 20211129
  2. INFLECTRA [Suspect]
     Active Substance: INFLIXIMAB-DYYB
     Dosage: 5 MG/KG ON WEEKS 0, 2 AND 6 AND THEN EVERY 8 WEEKS
     Route: 042
     Dates: start: 20211213
  3. INFLECTRA [Suspect]
     Active Substance: INFLIXIMAB-DYYB
     Dosage: 5 MG/KG ON WEEKS 0, 2 AND 6 AND THEN EVERY 8 WEEKS
     Route: 042
     Dates: start: 20220107
  4. INFLECTRA [Suspect]
     Active Substance: INFLIXIMAB-DYYB
     Dosage: 5 MG/KG ON WEEKS 0, 2 AND 6 AND THEN EVERY 8 WEEKS
     Route: 042
     Dates: start: 20220304
  5. INFLECTRA [Suspect]
     Active Substance: INFLIXIMAB-DYYB
     Dosage: 5 MG/KG ON WEEKS 0, 2 AND 6 AND THEN EVERY 8 WEEKS
     Route: 042
     Dates: start: 20220817
  6. INFLECTRA [Suspect]
     Active Substance: INFLIXIMAB-DYYB
     Dosage: 5 MG/KG ON WEEKS 0, 2 AND 6 AND THEN EVERY 8 WEEKS
     Route: 042
     Dates: start: 20221012
  7. INFLECTRA [Suspect]
     Active Substance: INFLIXIMAB-DYYB
     Dosage: 5 MG/KG ON WEEKS 0, 2 AND 6 AND THEN EVERY 8 WEEKS
     Route: 042
     Dates: start: 20221215
  8. INFLECTRA [Suspect]
     Active Substance: INFLIXIMAB-DYYB
     Dosage: 370 MG (5MG/KG), Q8WEEKS
     Route: 042
     Dates: start: 20230208
  9. INFLECTRA [Suspect]
     Active Substance: INFLIXIMAB-DYYB
     Dosage: 365 MG (5MG/KG), EVERY 8 WEEKS
     Route: 042
     Dates: start: 20230413
  10. INFLECTRA [Suspect]
     Active Substance: INFLIXIMAB-DYYB
     Dosage: 375 MG (5MG/KG), EVERY 8 WEEKS
     Route: 042
     Dates: start: 20230613
  11. INFLECTRA [Suspect]
     Active Substance: INFLIXIMAB-DYYB
     Dosage: 770 MG (10MG/KG), EVERY 8 WEEKS
     Route: 042
     Dates: start: 20230803
  12. ACETAMINOPHEN [Concomitant]
     Active Substance: ACETAMINOPHEN
     Dosage: 500 MG
     Route: 048
  13. ALENDRONATE [Concomitant]
     Active Substance: ALENDRONATE SODIUM
     Dosage: 70 MG
     Route: 048
  14. BREO ELLIPTA [Concomitant]
     Active Substance: FLUTICASONE FUROATE\VILANTEROL TRIFENATATE
     Dosage: 100 UG
     Route: 055
  15. CALCIUM [Concomitant]
     Active Substance: CALCIUM
     Dosage: 500 MG
     Route: 048
  16. CALCIUM CHLORIDE [Concomitant]
     Active Substance: CALCIUM CHLORIDE
     Dosage: UNK
  17. CELEBREX [Concomitant]
     Active Substance: CELECOXIB
     Indication: Pain
     Dosage: 1 DF
     Route: 065
  18. DILAUDID [Concomitant]
     Active Substance: HYDROMORPHONE HYDROCHLORIDE
     Dosage: UNK
  19. CHOLECALCIFEROL [Concomitant]
     Active Substance: CHOLECALCIFEROL
     Dosage: 1000 UNITE
  20. CHOLECALCIFEROL [Concomitant]
     Active Substance: CHOLECALCIFEROL
     Dosage: 1000 IU
     Route: 048
  21. PANTOPRAZOLE [Concomitant]
     Active Substance: PANTOPRAZOLE
     Dosage: 40 MG
     Route: 048
  22. PERINDOPRIL [Concomitant]
     Active Substance: PERINDOPRIL
     Dosage: 2.5 MG (1DF)
     Route: 048
  23. PREMARIN [Concomitant]
     Active Substance: ESTROGENS, CONJUGATED
     Dosage: 300 UG
     Route: 048
  24. ALBUTEROL [Concomitant]
     Active Substance: ALBUTEROL
     Dosage: 100 UG
     Route: 055
  25. ZOPICLONE [Concomitant]
     Active Substance: ZOPICLONE
     Dosage: 7.5 MG (1DF)
     Route: 048
  26. MUPIROCIN [Concomitant]
     Active Substance: MUPIROCIN
     Dosage: UNK
     Route: 061
  27. MUPIROCIN [Concomitant]
     Active Substance: MUPIROCIN
     Dosage: 1 DF
     Route: 061

REACTIONS (43)
  - Bronchitis [Recovering/Resolving]
  - Pneumonia [Unknown]
  - Pupillary block [Unknown]
  - Drug level below therapeutic [Unknown]
  - Condition aggravated [Recovering/Resolving]
  - Tooth extraction [Unknown]
  - Deafness unilateral [Unknown]
  - Haematochezia [Recovered/Resolved with Sequelae]
  - Pulmonary embolism [Not Recovered/Not Resolved]
  - Ear infection [Recovered/Resolved]
  - Arthralgia [Not Recovered/Not Resolved]
  - Vaginal haemorrhage [Not Recovered/Not Resolved]
  - COVID-19 [Recovered/Resolved]
  - Asthma [Not Recovered/Not Resolved]
  - Pain [Recovered/Resolved]
  - Aphonia [Not Recovered/Not Resolved]
  - Secretion discharge [Not Recovered/Not Resolved]
  - Nasal congestion [Not Recovered/Not Resolved]
  - Procedural pain [Not Recovered/Not Resolved]
  - Ear pain [Recovered/Resolved]
  - Neuralgia [Recovering/Resolving]
  - Erythema [Unknown]
  - Productive cough [Unknown]
  - Cerumen impaction [Recovered/Resolved]
  - Tendon rupture [Not Recovered/Not Resolved]
  - Bursitis [Not Recovered/Not Resolved]
  - Tendonitis [Not Recovered/Not Resolved]
  - Joint stiffness [Not Recovered/Not Resolved]
  - Trigger finger [Not Recovered/Not Resolved]
  - Wound [Recovering/Resolving]
  - Wound complication [Unknown]
  - Wound secretion [Unknown]
  - Pharyngitis streptococcal [Recovering/Resolving]
  - Erythema [Recovering/Resolving]
  - Nausea [Recovered/Resolved]
  - Gastroenteritis [Recovered/Resolved with Sequelae]
  - Arthralgia [Recovered/Resolved]
  - COVID-19 [Recovered/Resolved]
  - Influenza [Recovered/Resolved]
  - Sinusitis [Recovered/Resolved]
  - Off label use [Unknown]
  - Off label use [Unknown]
  - Intentional product use issue [Unknown]

NARRATIVE: CASE EVENT DATE: 20210101
